FAERS Safety Report 13470942 (Version 2)
Quarter: 2018Q2

REPORT INFORMATION
  Report Type: Spontaneous
  Country: US (occurrence: US)
  Receive Date: 20170424
  Receipt Date: 20180515
  Transmission Date: 20180711
  Serious: Yes (Other)
  Sender: FDA-Public Use
  Company Number: US-TEVA-717408USA

PATIENT
  Age: 64 Year
  Sex: Female
  Weight: 50 kg

DRUGS (2)
  1. LOSARTAN. [Suspect]
     Active Substance: LOSARTAN
     Dosage: 37.5 MILLIGRAM DAILY;
     Dates: end: 2016
  2. LOSARTAN. [Suspect]
     Active Substance: LOSARTAN
     Indication: HYPERTENSION
     Dosage: 25 MILLIGRAM DAILY; IF NEEDED, SPLIT SECOND TABLET IN HALF IN THE EVENING
     Route: 065

REACTIONS (15)
  - Nausea [Unknown]
  - Nasal congestion [Unknown]
  - Heart rate irregular [Unknown]
  - Dysgeusia [Unknown]
  - Wrong technique in product usage process [Unknown]
  - Tension [Unknown]
  - Anxiety [Not Recovered/Not Resolved]
  - Chills [Unknown]
  - Nasopharyngitis [Unknown]
  - Aphonia [Unknown]
  - Throat irritation [Unknown]
  - Laryngitis [Unknown]
  - Hypertension [Recovered/Resolved]
  - Balance disorder [Unknown]
  - Depression [Unknown]

NARRATIVE: CASE EVENT DATE: 20161109
